FAERS Safety Report 16833121 (Version 27)
Quarter: 2022Q3

REPORT INFORMATION
  Report Type: Report from Study
  Country: DE (occurrence: DE)
  Receive Date: 20190920
  Receipt Date: 20220906
  Transmission Date: 20221026
  Serious: Yes (Hospitalization, Other)
  Sender: FDA-Public Use
  Company Number: DE-ROCHE-2168822

PATIENT
  Age: 43 Year
  Sex: Female
  Weight: 116.3 kg

DRUGS (23)
  1. ARIPIPRAZOLE [Suspect]
     Active Substance: ARIPIPRAZOLE
     Indication: Product used for unknown indication
     Dosage: 15 MILLIGRAM, QD, 1-0-0
     Route: 065
     Dates: start: 20190514
  2. ARIPIPRAZOLE [Suspect]
     Active Substance: ARIPIPRAZOLE
     Dosage: 10 MILLIGRAM, QD, 1-0-0
     Route: 065
  3. ARIPIPRAZOLE [Suspect]
     Active Substance: ARIPIPRAZOLE
     Dosage: 20 MILLIGRAM, QD, 1-0-0
     Route: 065
  4. ARIPIPRAZOLE [Suspect]
     Active Substance: ARIPIPRAZOLE
     Dosage: 15 MILLIGRAM, QD, 1-0-0
     Route: 065
  5. ARIPIPRAZOLE [Suspect]
     Active Substance: ARIPIPRAZOLE
     Dosage: 10 MILLIGRAM, QD, 1-0-0
     Route: 065
  6. OCREVUS [Suspect]
     Active Substance: OCRELIZUMAB
     Indication: Relapsing-remitting multiple sclerosis
     Dosage: 300 MILLIGRAM (SECOND INFUSION RECEIVED ON ON 24/JUL/2018)
     Route: 042
     Dates: start: 20180712, end: 20220126
  7. OCREVUS [Suspect]
     Active Substance: OCRELIZUMAB
     Dosage: SECOND INFUSION RECEIVED ON ON 24/JUL/2018,27/AUG/2019
     Route: 042
     Dates: start: 20180712, end: 20220126
  8. OCREVUS [Suspect]
     Active Substance: OCRELIZUMAB
     Dosage: 600 MILLIGRAM,4TH INFUSION
     Route: 042
     Dates: start: 202003
  9. OCREVUS [Suspect]
     Active Substance: OCRELIZUMAB
     Dosage: 600 MILLIGRAM, QD
     Route: 042
     Dates: start: 20190205
  10. OCREVUS [Suspect]
     Active Substance: OCRELIZUMAB
     Dosage: 600 MILLIGRAM
     Route: 042
     Dates: start: 20200902
  11. OCREVUS [Suspect]
     Active Substance: OCRELIZUMAB
     Dosage: 600 MILLIGRAM
     Route: 042
     Dates: start: 20200904
  12. OCREVUS [Suspect]
     Active Substance: OCRELIZUMAB
     Dosage: 600 MILLIGRAM
     Route: 042
     Dates: start: 20190827
  13. OCREVUS [Suspect]
     Active Substance: OCRELIZUMAB
     Dosage: SECOND INFUSION
     Route: 042
     Dates: start: 20180724
  14. OCREVUS [Suspect]
     Active Substance: OCRELIZUMAB
     Dosage: 600 MILLIGRAM
     Route: 042
     Dates: start: 20210427
  15. SODIUM PROPIONATE [Suspect]
     Active Substance: SODIUM PROPIONATE
     Indication: Product used for unknown indication
     Dosage: 1000 MILLIGRAM, QD
     Route: 065
  16. SODIUM PROPIONATE [Suspect]
     Active Substance: SODIUM PROPIONATE
     Dosage: 500 MILLIGRAM, 0.5 DAY (1-0-1)
     Route: 065
     Dates: start: 20190610
  17. CORTISONE [Suspect]
     Active Substance: CORTISONE
     Indication: Product used for unknown indication
     Dosage: UNK
     Route: 065
  18. CLINDAMYCIN [Suspect]
     Active Substance: CLINDAMYCIN
     Indication: Acne
     Dosage: UNK
     Route: 065
     Dates: start: 20210106
  19. CLINDAMYCIN [Suspect]
     Active Substance: CLINDAMYCIN
     Dosage: UNK
     Route: 065
  20. IBUPROFEN [Suspect]
     Active Substance: IBUPROFEN
     Indication: Exostosis
     Dosage: START DATE 20-FEB-2021 600 MILLIGRAM
     Route: 065
     Dates: start: 20210220
  21. DIETARY SUPPLEMENT\HERBALS [Suspect]
     Active Substance: DIETARY SUPPLEMENT\HERBALS
     Indication: Nasal crusting
     Dosage: UNK
     Route: 048
  22. SODIUM PROPIONATE [Suspect]
     Active Substance: SODIUM PROPIONATE
     Indication: Product used for unknown indication
     Dosage: 500 MILLIGRAM, BID,1-0-1
     Route: 065
     Dates: start: 20190610
  23. NATALIZUMAB [Concomitant]
     Active Substance: NATALIZUMAB
     Dosage: UNK
     Route: 065

REACTIONS (69)
  - Skin disorder [Unknown]
  - Panic attack [Recovered/Resolved]
  - Norovirus infection [Recovered/Resolved]
  - Multiple sclerosis relapse [Recovered/Resolved]
  - Vertigo positional [Recovered/Resolved]
  - Product use issue [Unknown]
  - Genital abscess [Recovered/Resolved]
  - Syncope [Not Recovered/Not Resolved]
  - Vein of Galen aneurysmal malformation [Recovered/Resolved]
  - Intervertebral disc protrusion [Not Recovered/Not Resolved]
  - Urine analysis abnormal [Recovered/Resolved]
  - Pain in extremity [Recovered/Resolved]
  - Nasopharyngitis [Recovered/Resolved]
  - Pain [Recovering/Resolving]
  - Influenza [Recovered/Resolved]
  - Paraesthesia [Recovered/Resolved]
  - Listless [Recovered/Resolved]
  - Vitamin D decreased [Recovered/Resolved]
  - Erythema [Recovered/Resolved]
  - Dyspnoea [Recovered/Resolved]
  - Autoinflammatory disease [Recovered/Resolved]
  - Hypoaesthesia [Recovered/Resolved]
  - Joint dislocation [Recovered/Resolved]
  - Mood swings [Recovered/Resolved]
  - Drug level increased [Recovered/Resolved]
  - Muscle tightness [Recovered/Resolved]
  - Heart rate increased [Recovered/Resolved]
  - Acne [Recovered/Resolved]
  - Malaise [Recovered/Resolved]
  - Memory impairment [Recovered/Resolved]
  - Lymphadenopathy [Recovered/Resolved]
  - Angular cheilitis [Recovered/Resolved]
  - Nasal dryness [Recovered/Resolved]
  - Menstruation irregular [Recovered/Resolved]
  - Dry eye [Recovered/Resolved]
  - Red blood cell sedimentation rate increased [Recovered/Resolved]
  - Vaginal haemorrhage [Recovered/Resolved]
  - Oestradiol increased [Unknown]
  - Exostosis [Recovered/Resolved]
  - Fear of disease [Not Recovered/Not Resolved]
  - Progesterone decreased [Unknown]
  - Blood oestrogen increased [Recovering/Resolving]
  - Onychomycosis [Recovered/Resolved]
  - Tendon disorder [Unknown]
  - Depressed mood [Recovered/Resolved]
  - Breath sounds abnormal [Recovered/Resolved]
  - Asthenia [Recovered/Resolved]
  - Smear cervix abnormal [Not Recovered/Not Resolved]
  - Lacrimal disorder [Unknown]
  - Back pain [Recovered/Resolved]
  - Gingival abscess [Recovered/Resolved]
  - Wound [Recovered/Resolved]
  - Inappropriate schedule of product administration [Unknown]
  - Body temperature increased [Recovered/Resolved]
  - Weight increased [Recovered/Resolved]
  - Fatigue [Recovered/Resolved]
  - Diarrhoea [Recovered/Resolved]
  - Pruritus [Recovered/Resolved]
  - Headache [Recovered/Resolved]
  - Myalgia [Recovered/Resolved]
  - Insomnia [Recovered/Resolved]
  - Hypersensitivity [Recovered/Resolved]
  - Periorbital haematoma [Recovered/Resolved]
  - Lip injury [Recovered/Resolved]
  - Sacral pain [Recovered/Resolved]
  - Aphasia [Recovered/Resolved]
  - COVID-19 [Recovered/Resolved]
  - Cyst [Recovered/Resolved]
  - Condition aggravated [Recovered/Resolved]

NARRATIVE: CASE EVENT DATE: 20180712
